FAERS Safety Report 11709452 (Version 1)
Quarter: 2015Q4

REPORT INFORMATION
  Report Type: Spontaneous
  Country: US (occurrence: US)
  Receive Date: 20151104
  Receipt Date: 20151104
  Transmission Date: 20160304
  Serious: No
  Sender: FDA-Public Use
  Company Number: US-ELI_LILLY_AND_COMPANY-US201103005427

PATIENT
  Age: 82 Year
  Sex: Female

DRUGS (13)
  1. FORTEO [Suspect]
     Active Substance: TERIPARATIDE
     Indication: OSTEOPOROSIS
     Dosage: 20 UG, QD
     Route: 065
     Dates: start: 20110312
  2. ANTIVERT [Concomitant]
     Active Substance: MECLIZINE HYDROCHLORIDE
  3. FLEXERIL [Concomitant]
     Active Substance: CYCLOBENZAPRINE HYDROCHLORIDE
  4. CALCIUM +D                         /00188401/ [Concomitant]
     Active Substance: CALCIUM\VITAMIN D
     Dosage: 660 MG, UNK
  5. NEXIUM [Concomitant]
     Active Substance: ESOMEPRAZOLE MAGNESIUM
  6. VITAMIN C [Concomitant]
     Active Substance: ASCORBIC ACID
  7. SIMVASTAN [Concomitant]
  8. LOSARTAN. [Concomitant]
     Active Substance: LOSARTAN
     Dosage: 50 MG, OTHER
  9. LOSARTAN. [Concomitant]
     Active Substance: LOSARTAN
     Dosage: 12.5 MG, OTHER
  10. ACETAMINOPHEN. [Concomitant]
     Active Substance: ACETAMINOPHEN
  11. GLIPIZIDE XL [Concomitant]
     Active Substance: GLIPIZIDE
  12. DIPYRIDAMOLE. [Concomitant]
     Active Substance: DIPYRIDAMOLE
     Dosage: 25 MG, UNK
  13. JANUVIA [Concomitant]
     Active Substance: SITAGLIPTIN PHOSPHATE
     Dosage: 100 MG, UNK

REACTIONS (14)
  - Headache [Not Recovered/Not Resolved]
  - Muscular weakness [Unknown]
  - Sleep disorder due to a general medical condition [Not Recovered/Not Resolved]
  - Pain [Unknown]
  - Injection site bruising [Unknown]
  - Myalgia [Unknown]
  - Dysstasia [Unknown]
  - Polymyalgia rheumatica [Unknown]
  - Muscle spasms [Unknown]
  - Bone pain [Unknown]
  - Fall [Recovered/Resolved]
  - Fatigue [Unknown]
  - Toothache [Unknown]
  - Fear [Unknown]

NARRATIVE: CASE EVENT DATE: 201103
